FAERS Safety Report 23172958 (Version 1)
Quarter: 2023Q4

REPORT INFORMATION
  Report Type: Report from Study
  Country: GB (occurrence: GB)
  Receive Date: 20231110
  Receipt Date: 20231110
  Transmission Date: 20240109
  Serious: Yes (Hospitalization, Other)
  Sender: FDA-Public Use
  Company Number: GB-002147023-NVSC2023GB151794

PATIENT
  Sex: Female

DRUGS (2)
  1. MAYZENT [Suspect]
     Active Substance: SIPONIMOD
     Indication: Multiple sclerosis
     Dosage: 2 MG, QD
     Route: 048
     Dates: start: 20230703, end: 20230703
  2. MAYZENT [Suspect]
     Active Substance: SIPONIMOD
     Dosage: 2 MG, QD
     Route: 048
     Dates: start: 20231009

REACTIONS (6)
  - Diarrhoea [Recovered/Resolved]
  - Seizure [Unknown]
  - Musculoskeletal stiffness [Unknown]
  - Fall [Unknown]
  - Abnormal dreams [Recovered/Resolved]
  - Sleep talking [Recovered/Resolved]

NARRATIVE: CASE EVENT DATE: 20230703
